FAERS Safety Report 4561325-2 (Version None)
Quarter: 2005Q1

REPORT INFORMATION
  Report Type: 
  Country: None (occurrence: None)
  Receive Date: 20050126
  Receipt Date: 20050119
  Transmission Date: 20050727
  Serious: Yes (Other)
  Sender: FDA-Public Use
  Company Number: CA-BRISTOL-MYERS SQUIBB COMPANY-12834461

PATIENT
  Age: 58 Year
  Sex: Male

DRUGS (1)
  1. CETUXIMAB [Suspect]
     Indication: COLORECTAL CANCER METASTATIC
     Dosage: CETUXIMAB INITIATED 01-NOV-04 (12 WEEKS ON TREATMENT). REGIMEN INTERRUPTED.

REACTIONS (1)
  - HYPOMAGNESAEMIA [None]
